FAERS Safety Report 4567228-1 (Version None)
Quarter: 2005Q1

REPORT INFORMATION
  Report Type: 
  Country: None (occurrence: None)
  Receive Date: 20050127
  Receipt Date: 20050120
  Transmission Date: 20050727
  Serious: No
  Sender: FDA-Public Use
  Company Number: 211875

PATIENT
  Age: 43 Year
  Sex: Male
  Weight: 120.2 kg

DRUGS (9)
  1. XOLAIR [Suspect]
     Indication: ASTHMA
     Dosage: 375 MG, Q2W , INTRAMUSCULAR
     Route: 030
     Dates: start: 20040428, end: 20050118
  2. MEDROL [Concomitant]
  3. LEVAQUIN [Concomitant]
  4. HYDROXYCHLOROQUINE (HYDROXYCHLOROQUINE SULFATE) [Concomitant]
  5. ALLEGRA [Concomitant]
  6. SINGULAIR [Concomitant]
  7. ZANTAC [Concomitant]
  8. ALBUTEROL (ALBUTEROL SULFATE, ALBUTEROL) [Concomitant]
  9. DOXEPIN (DOXEPIN HYDROCHLORIDE) [Concomitant]

REACTIONS (6)
  - ANAPHYLACTIC REACTION [None]
  - COUGH [None]
  - FLUSHING [None]
  - PRURITUS [None]
  - RESPIRATORY TRACT CONGESTION [None]
  - RHONCHI [None]
